FAERS Safety Report 6505174-4 (Version None)
Quarter: 2009Q4

REPORT INFORMATION
  Report Type: 
  Country: None (occurrence: None)
  Receive Date: 20091216
  Receipt Date: 20091201
  Transmission Date: 20100525
  Serious: Yes (Hospitalization)
  Sender: FDA-Public Use
  Company Number: 230026M09NLD

PATIENT
  Sex: Male

DRUGS (2)
  1. REBIF [Suspect]
     Indication: MULTIPLE SCLEROSIS
     Dosage: 44, SUBCUTANEOUS
     Route: 058
     Dates: start: 20090501, end: 20090501
  2. REBIF [Suspect]
     Indication: MULTIPLE SCLEROSIS
     Dosage: 44, SUBCUTANEOUS
     Route: 058
     Dates: start: 20090520, end: 20091125

REACTIONS (2)
  - CARDIAC DISORDER [None]
  - MOVEMENT DISORDER [None]
